FAERS Safety Report 9060038 (Version 1)
Quarter: 2013Q1

REPORT INFORMATION
  Report Type: Spontaneous
  Country: US (occurrence: None)
  Receive Date: 20130207
  Receipt Date: 20130207
  Transmission Date: 20140127
  Serious: Yes (Other)
  Sender: FDA-Public Use
  Company Number: None

PATIENT
  Age: 75 Year
  Sex: Female
  Weight: 73.48 kg

DRUGS (3)
  1. ZOLIPIDERM TARTRATE 10MG (TORRENT) [Suspect]
     Indication: SLEEP DISORDER
     Dosage: 10 MG 1 AT BEDTIME
     Dates: start: 20120503, end: 20121015
  2. ZOLPEDEM TARTRATE 10MG (TORRENT) [Suspect]
     Indication: SLEEP DISORDER
     Dosage: 10 MG 1 AT BEDTIME
     Dates: start: 20121015
  3. ZOLPIDEM TARTRATE 10 MG (TORRENT) [Suspect]
     Indication: SLEEP DISORDER
     Dosage: 10 MG 1 AT BEDTIME
     Dates: end: 20121015

REACTIONS (5)
  - Pain in extremity [None]
  - Neck pain [None]
  - Hypoaesthesia [None]
  - Disorientation [None]
  - Feeling abnormal [None]
